FAERS Safety Report 19287856 (Version 1)
Quarter: 2021Q2

REPORT INFORMATION
  Report Type: Spontaneous
  Country: KR (occurrence: KR)
  Receive Date: 20210521
  Receipt Date: 20210521
  Transmission Date: 20210717
  Serious: Yes (Other)
  Sender: FDA-Public Use
  Company Number: KR-JNJFOC-20210523996

PATIENT
  Age: 34 Year
  Sex: Female

DRUGS (17)
  1. SPRAVATO [Suspect]
     Active Substance: ESKETAMINE
     Dates: start: 20210327
  2. ATOMOXETINE. [Concomitant]
     Active Substance: ATOMOXETINE HYDROCHLORIDE
  3. ARIPIPRAZOLE. [Concomitant]
     Active Substance: ARIPIPRAZOLE
     Dates: start: 20210306
  4. ALPRAZOLAM. [Concomitant]
     Active Substance: ALPRAZOLAM
  5. CLONAZEPAM. [Concomitant]
     Active Substance: CLONAZEPAM
  6. SPRAVATO [Suspect]
     Active Substance: ESKETAMINE
     Dates: start: 20210309
  7. ARIPIPRAZOLE. [Concomitant]
     Active Substance: ARIPIPRAZOLE
  8. DESVENLAFAXINE. [Concomitant]
     Active Substance: DESVENLAFAXINE
     Dates: start: 20210220
  9. METHYLPHENIDATE. [Concomitant]
     Active Substance: METHYLPHENIDATE
  10. BUPROPION. [Concomitant]
     Active Substance: BUPROPION
  11. PRAMIPEXOLE. [Concomitant]
     Active Substance: PRAMIPEXOLE
  12. FLUOXETINE [Concomitant]
     Active Substance: FLUOXETINE HYDROCHLORIDE
  13. DESVENLAFAXINE. [Concomitant]
     Active Substance: DESVENLAFAXINE
     Dates: start: 20210327
  14. PROPRANOLOL [Concomitant]
     Active Substance: PROPRANOLOL HYDROCHLORIDE
  15. SPRAVATO [Suspect]
     Active Substance: ESKETAMINE
     Indication: DEPRESSION
     Dates: start: 20210215
  16. DESVENLAFAXINE. [Concomitant]
     Active Substance: DESVENLAFAXINE
  17. PRAMIPEXOLE. [Concomitant]
     Active Substance: PRAMIPEXOLE
     Dates: start: 20210327

REACTIONS (8)
  - Dizziness [Unknown]
  - Anxiety [Unknown]
  - Suicidal ideation [Unknown]
  - Agitation [Unknown]
  - Hallucination, auditory [Unknown]
  - Headache [Unknown]
  - Nausea [Unknown]
  - Dysphemia [Unknown]

NARRATIVE: CASE EVENT DATE: 20210215
